FAERS Safety Report 8294305-4 (Version None)
Quarter: 2012Q2

REPORT INFORMATION
  Report Type: 
  Country: None (occurrence: None)
  Receive Date: 20120418
  Receipt Date: 20120406
  Transmission Date: 20120825
  Serious: Yes (Other)
  Sender: FDA-Public Use
  Company Number: US-SANOFI-AVENTIS-2012SA024465

PATIENT

DRUGS (1)
  1. LOVENOX [Suspect]

REACTIONS (1)
  - CELLULITIS [None]
